FAERS Safety Report 5958839-7 (Version None)
Quarter: 2008Q4

REPORT INFORMATION
  Report Type: 
  Country: None (occurrence: None)
  Receive Date: 20081117
  Receipt Date: 20081111
  Transmission Date: 20090506
  Serious: Yes (Life-Threatening)
  Sender: FDA-Public Use
  Company Number: S08-CAN-00985-01

PATIENT
  Weight: 3.23 kg

DRUGS (1)
  1. DINOPROSTONE (DINOPROSTONE) (10 MILLIGRAM, VAGINAL INSERT) [Suspect]
     Dosage: 10 MG (10 MG, ONCE), TRANSPLACENTAL
     Route: 064
     Dates: start: 20071013, end: 20071014

REACTIONS (7)
  - BLOOD PH DECREASED [None]
  - CAESAREAN SECTION [None]
  - FOETAL HEART RATE ABNORMAL [None]
  - FOETAL HEART RATE DECELERATION [None]
  - MATERNAL DRUGS AFFECTING FOETUS [None]
  - PCO2 INCREASED [None]
  - VENOUS OXYGEN SATURATION DECREASED [None]
